FAERS Safety Report 6104187-4 (Version None)
Quarter: 2009Q1

REPORT INFORMATION
  Report Type: 
  Country: None (occurrence: None)
  Receive Date: 20090305
  Receipt Date: 20090220
  Transmission Date: 20090719
  Serious: Yes (Other)
  Sender: FDA-Public Use
  Company Number: CA-GENENTECH-274181

PATIENT
  Sex: Female
  Weight: 58 kg

DRUGS (1)
  1. OMALIZUMAB [Suspect]
     Indication: ASTHMA
     Dosage: 150 UNK, UNK
     Route: 058
     Dates: start: 20080807, end: 20090119

REACTIONS (2)
  - DRUG INEFFECTIVE [None]
  - RESPIRATORY DISORDER [None]
